FAERS Safety Report 8053140-2 (Version None)
Quarter: 2011Q4

REPORT INFORMATION
  Report Type: 
  Country: None (occurrence: None)
  Receive Date: 20111213
  Receipt Date: 20110517
  Transmission Date: 20120403
  Serious: No
  Sender: FDA-Public Use
  Company Number: 2011SP022644

PATIENT
  Age: 26 Year
  Sex: Male

DRUGS (4)
  1. SAPHRIS [Suspect]
     Indication: BIPOLAR I DISORDER
     Dosage: 2.5 MG;QD;PO ; 1.25 MG;QD ; 2.5 MG;QD ; 0.625 MG;QD
     Route: 048
  2. SAPHRIS [Suspect]
     Indication: BIPOLAR I DISORDER
     Dosage: 2.5 MG;QD;PO ; 1.25 MG;QD ; 2.5 MG;QD ; 0.625 MG;QD
     Route: 048
     Dates: start: 20110513
  3. SAPHRIS [Suspect]
     Indication: BIPOLAR I DISORDER
     Dosage: 2.5 MG;QD;PO ; 1.25 MG;QD ; 2.5 MG;QD ; 0.625 MG;QD
     Route: 048
     Dates: start: 20110426, end: 20110503
  4. LAMICTAL [Concomitant]

REACTIONS (14)
  - WRONG TECHNIQUE IN DRUG USAGE PROCESS [None]
  - PARAESTHESIA [None]
  - SEDATION [None]
  - INCORRECT ROUTE OF DRUG ADMINISTRATION [None]
  - ARTHRALGIA [None]
  - DIZZINESS [None]
  - MYALGIA [None]
  - DISORIENTATION [None]
  - LACRIMATION INCREASED [None]
  - NAUSEA [None]
  - UNDERDOSE [None]
  - INFLUENZA LIKE ILLNESS [None]
  - COUGH [None]
  - BRADYPHRENIA [None]
